FAERS Safety Report 14908928 (Version 1)
Quarter: 2018Q2

REPORT INFORMATION
  Report Type: Spontaneous
  Country: US (occurrence: US)
  Receive Date: 20180517
  Receipt Date: 20180517
  Transmission Date: 20180711
  Serious: Yes (Other)
  Sender: FDA-Public Use
  Company Number: US-JNJFOC-20180512720

PATIENT
  Sex: Female
  Weight: 58.97 kg

DRUGS (1)
  1. INVEGA SUSTENNA [Suspect]
     Active Substance: PALIPERIDONE PALMITATE
     Indication: SCHIZOAFFECTIVE DISORDER
     Route: 030
     Dates: start: 201704, end: 20180319

REACTIONS (7)
  - Urticaria [Recovering/Resolving]
  - Suicidal ideation [Unknown]
  - Weight increased [Unknown]
  - Depression [Unknown]
  - Galactorrhoea [Not Recovered/Not Resolved]
  - Treatment noncompliance [Unknown]
  - Back pain [Unknown]

NARRATIVE: CASE EVENT DATE: 2017
